FAERS Safety Report 21999799 (Version 2)
Quarter: 2023Q2

REPORT INFORMATION
  Report Type: Spontaneous
  Country: US (occurrence: US)
  Receive Date: 20230216
  Receipt Date: 20230509
  Transmission Date: 20230721
  Serious: No
  Sender: FDA-Public Use
  Company Number: US-PFIZER INC-202300063781

PATIENT
  Age: 85 Year
  Sex: Female
  Weight: 49.9 kg

DRUGS (1)
  1. RETACRIT [Suspect]
     Active Substance: EPOETIN ALFA-EPBX
     Indication: Haemoglobin abnormal
     Dosage: 20000 MG, ONCE A WEEK

REACTIONS (3)
  - Bone pain [Unknown]
  - Insomnia [Unknown]
  - Wrong strength [Unknown]

NARRATIVE: CASE EVENT DATE: 20230101
